FAERS Safety Report 13230174 (Version 1)
Quarter: 2017Q1

REPORT INFORMATION
  Report Type: Spontaneous
  Country: US (occurrence: US)
  Receive Date: 20170214
  Receipt Date: 20170214
  Transmission Date: 20170428
  Serious: No
  Sender: FDA-Public Use
  Company Number: None

PATIENT
  Age: 56 Year
  Sex: Female
  Weight: 78.54 kg

DRUGS (1)
  1. IBRANCE [Suspect]
     Active Substance: PALBOCICLIB
     Indication: BREAST CANCER
     Route: 048
     Dates: start: 20161206

REACTIONS (6)
  - Peripheral swelling [None]
  - Therapy cessation [None]
  - Vomiting [None]
  - Dizziness [None]
  - Decreased appetite [None]
  - Abdominal discomfort [None]

NARRATIVE: CASE EVENT DATE: 20170207
